FAERS Safety Report 7238166-0 (Version None)
Quarter: 2011Q1

REPORT INFORMATION
  Report Type: 
  Country: None (occurrence: None)
  Receive Date: 20110119
  Receipt Date: 20110119
  Transmission Date: 20110831
  Serious: Yes (Hospitalization)
  Sender: FDA-Public Use
  Company Number: None

PATIENT
  Age: 50 Year
  Sex: Male
  Weight: 77.4 kg

DRUGS (2)
  1. VANCOMYCIN [Suspect]
     Indication: RENAL FAILURE ACUTE
     Dosage: 1.25 GM BID IV
     Route: 042
     Dates: start: 20100701, end: 20100727
  2. PIPERACILLIN AND TAZOBACTAM [Suspect]
     Indication: RENAL FAILURE ACUTE
     Dosage: MG TID IV
     Route: 042
     Dates: start: 20100701, end: 20100727

REACTIONS (3)
  - NEPHROPATHY TOXIC [None]
  - NEPHRITIS [None]
  - RENAL FAILURE ACUTE [None]
